FAERS Safety Report 7642755-9 (Version None)
Quarter: 2011Q3

REPORT INFORMATION
  Report Type: 
  Country: None (occurrence: None)
  Receive Date: 20110728
  Receipt Date: 20110725
  Transmission Date: 20111222
  Serious: Yes (Death, Other)
  Sender: FDA-Public Use
  Company Number: PHHY2011JP54983

PATIENT
  Sex: Male
  Weight: 74 kg

DRUGS (6)
  1. ERBITUX [Suspect]
     Dosage: 400 MG, UNK
     Route: 042
     Dates: start: 20110419, end: 20110419
  2. IRINOTECAN HYDROCHLORIDE [Suspect]
     Dosage: 170 MG, UNK
     Route: 042
     Dates: start: 20110426, end: 20110426
  3. IRINOTECAN HYDROCHLORIDE [Suspect]
     Dosage: 170 MG, UNK
     Route: 042
     Dates: start: 20110419, end: 20110419
  4. IRINOTECAN HYDROCHLORIDE [Suspect]
     Indication: COLON CANCER STAGE IV
     Dosage: 170 MG, WEEKLY
     Route: 042
     Dates: start: 20110412, end: 20110412
  5. ERBITUX [Suspect]
     Indication: COLON CANCER STAGE IV
     Dosage: 400 MG, WEEKLY
     Route: 042
     Dates: start: 20110412, end: 20110412
  6. ERBITUX [Suspect]
     Dosage: 400 MG, UNK
     Route: 042
     Dates: start: 20110426, end: 20110426

REACTIONS (7)
  - DIARRHOEA [None]
  - NEOPLASM MALIGNANT [None]
  - VOMITING [None]
  - WHITE BLOOD CELL COUNT DECREASED [None]
  - NEUTROPHIL COUNT DECREASED [None]
  - DISORIENTATION [None]
  - PYREXIA [None]
